FAERS Safety Report 7302356-9 (Version None)
Quarter: 2011Q1

REPORT INFORMATION
  Report Type: 
  Country: None (occurrence: None)
  Receive Date: 20110218
  Receipt Date: 20110215
  Transmission Date: 20110831
  Serious: Yes (Life-Threatening, Hospitalization, Other)
  Sender: FDA-Public Use
  Company Number: FR-ABBOTT-11P-056-0701872-00

PATIENT
  Sex: Female
  Weight: 47 kg

DRUGS (2)
  1. HUMIRA [Suspect]
     Route: 058
     Dates: start: 20100901, end: 20101210
  2. HUMIRA [Suspect]
     Indication: CROHN'S DISEASE
     Route: 058
     Dates: start: 20100107, end: 20100901

REACTIONS (6)
  - RESPIRATORY DISTRESS [None]
  - LUNG DISORDER [None]
  - SEPTIC SHOCK [None]
  - SMALL INTESTINAL STENOSIS [None]
  - HISTIOCYTOSIS HAEMATOPHAGIC [None]
  - ILEITIS [None]
